FAERS Safety Report 25923337 (Version 2)
Quarter: 2025Q4

REPORT INFORMATION
  Report Type: Report from Study
  Country: US (occurrence: None)
  Receive Date: 20251015
  Receipt Date: 20251206
  Transmission Date: 20260118
  Serious: Yes (Other)
  Sender: UCB
  Company Number: US-UCBSA-2025022470

PATIENT
  Age: 65 Year
  Weight: 79.37 kg

DRUGS (18)
  1. BIMEKIZUMAB [Suspect]
     Active Substance: BIMEKIZUMAB
     Indication: Hidradenitis
     Dosage: 320 MILLIGRAM, EV 2 WEEKS(QOW)
  2. BIMEKIZUMAB [Suspect]
     Active Substance: BIMEKIZUMAB
     Dosage: 320 MILLIGRAM, EV 2 WEEKS(QOW)
  3. BIMEKIZUMAB [Suspect]
     Active Substance: BIMEKIZUMAB
     Dosage: 320 MILLIGRAM, EV 4 WEEKS
  4. BIMEKIZUMAB [Suspect]
     Active Substance: BIMEKIZUMAB
     Dosage: 320 MILLIGRAM, EV 2 WEEKS(QOW)
  5. BIMEKIZUMAB [Suspect]
     Active Substance: BIMEKIZUMAB
     Dosage: 320 MILLIGRAM, EV 2 WEEKS(QOW)
  6. GLUCOTROL [Concomitant]
     Active Substance: GLIPIZIDE
     Indication: Type 2 diabetes mellitus
     Dosage: 5 MILLIGRAM, 2X/DAY (BID)
  7. LIPITOR [Concomitant]
     Active Substance: ATORVASTATIN CALCIUM
     Indication: Blood cholesterol
     Dosage: 40 MILLIGRAM, ONCE DAILY (QD)
  8. CLINDAMYCIN [Concomitant]
     Active Substance: CLINDAMYCIN
     Indication: Product used for unknown indication
     Dosage: 300 MILLIGRAM, 2X/DAY (BID)
  9. NORCO [Concomitant]
     Active Substance: ACETAMINOPHEN\HYDROCODONE BITARTRATE
     Indication: Pain
     Dosage: 10/325MG, 2X/DAY (BID)
  10. ZINC [Concomitant]
     Active Substance: ZINC
     Indication: Product used for unknown indication
     Dosage: UNK, 2X/DAY (BID)
  11. VITAMIN B3 [Concomitant]
     Active Substance: NIACIN
     Indication: Product used for unknown indication
     Dosage: UNK, 2X/DAY (BID)
  12. PROBIOTICS [PROBIOTICS NOS] [Concomitant]
     Indication: Product used for unknown indication
     Dosage: UNK, 2X/DAY (BID)
  13. TRIAD HYDROPHILIC WOUND DRESSING [Concomitant]
     Indication: Wound
     Dosage: UNK
  14. OZEMPIC [Concomitant]
     Active Substance: SEMAGLUTIDE
     Indication: Type 2 diabetes mellitus
     Dosage: 1.5 MILLIGRAM, ONCE DAILY (QD) (2 MG/DOSE, 8 MG/3ML PREFILLED PEN)
  15. OZEMPIC [Concomitant]
     Active Substance: SEMAGLUTIDE
     Dosage: 2 MILLIGRAM, WEEKLY (QW)
  16. GLIPIZIDE [Concomitant]
     Active Substance: GLIPIZIDE
     Indication: Diabetes mellitus
     Dosage: 5 MILLIGRAM, 2X/DAY (BID)
  17. DIHYDROCODEINE PHOSPHATE [Concomitant]
     Active Substance: DIHYDROCODEINE PHOSPHATE
     Indication: Product used for unknown indication
     Dosage: 10 MILLIGRAM, ONCE DAILY (QD)
  18. NIZORAL [Concomitant]
     Active Substance: KETOCONAZOLE
     Indication: Tinea versicolour
     Dosage: 2 PERCENT, ONCE DAILY (QD)

REACTIONS (13)
  - Hidradenitis [Not Recovered/Not Resolved]
  - Condition aggravated [Not Recovered/Not Resolved]
  - Cataract [Not Recovered/Not Resolved]
  - Negative thoughts [Not Recovered/Not Resolved]
  - Rash pruritic [Recovering/Resolving]
  - Skin discolouration [Not Recovered/Not Resolved]
  - Injection site pain [Recovered/Resolved]
  - Skin candida [Not Recovered/Not Resolved]
  - Dermatitis atopic [Not Recovered/Not Resolved]
  - Dermatitis contact [Not Recovered/Not Resolved]
  - Therapeutic response shortened [Unknown]
  - Insurance issue [Unknown]
  - Off label use [Unknown]
